FAERS Safety Report 13702929 (Version 2)
Quarter: 2017Q3

REPORT INFORMATION
  Report Type: Report from Study
  Country: DE (occurrence: DE)
  Receive Date: 20170629
  Receipt Date: 20170714
  Transmission Date: 20171127
  Serious: Yes (Hospitalization, Other)
  Sender: FDA-Public Use
  Company Number: DE-BRISTOL-MYERS SQUIBB COMPANY-BMS-2017-056326

PATIENT
  Age: 78 Year
  Sex: Female

DRUGS (1)
  1. APIXABAN [Suspect]
     Active Substance: APIXABAN
     Indication: CEREBROVASCULAR ACCIDENT PROPHYLAXIS
     Dosage: 5 MG, BID
     Route: 048
     Dates: end: 20161128

REACTIONS (10)
  - Gastritis erosive [Recovered/Resolved]
  - Erosive duodenitis [Recovered/Resolved]
  - Vitamin B12 deficiency [Unknown]
  - Intraductal papillary-mucinous carcinoma of pancreas [Recovered/Resolved]
  - Packed red blood cell transfusion [Unknown]
  - Anaemia [Recovered/Resolved]
  - Small intestinal haemorrhage [Recovered/Resolved]
  - Folate deficiency [Unknown]
  - Endoscopy upper gastrointestinal tract [Recovered/Resolved]
  - Acute kidney injury [Recovered/Resolved]

NARRATIVE: CASE EVENT DATE: 20161103
